FAERS Safety Report 21909238 (Version 1)
Quarter: 2023Q1

REPORT INFORMATION
  Report Type: Spontaneous
  Country: US (occurrence: None)
  Receive Date: 20230124
  Receipt Date: 20230124
  Transmission Date: 20230418
  Serious: Yes (Hospitalization)
  Sender: FDA-Public Use
  Company Number: None

PATIENT
  Age: 72 Year
  Sex: Male
  Weight: 88.00 kg

DRUGS (1)
  1. MIDAZOLAM HYDROCHLORIDE [Suspect]
     Active Substance: MIDAZOLAM HYDROCHLORIDE
     Indication: Pain
     Dosage: FREQUENCY : AS NEEDED;?
     Route: 042
     Dates: start: 20220812, end: 20220919

REACTIONS (7)
  - Agitation [None]
  - Disorientation [None]
  - Confusional state [None]
  - Delirium [None]
  - Mental status changes [None]
  - Dysarthria [None]
  - Dialysis [None]

NARRATIVE: CASE EVENT DATE: 20220812
